FAERS Safety Report 10775832 (Version 1)
Quarter: 2015Q1

REPORT INFORMATION
  Report Type: Spontaneous
  Country: US (occurrence: None)
  Receive Date: 20150205
  Receipt Date: 20150205
  Transmission Date: 20150721
  Serious: No
  Sender: FDA-Public Use
  Company Number: None

PATIENT
  Age: 56 Year
  Sex: Female
  Weight: 58.97 kg

DRUGS (1)
  1. DYCLONINE [Suspect]
     Active Substance: DYCLONINE
     Indication: GINGIVAL DISORDER
     Dosage: ORAL RINSE
     Dates: start: 20150204, end: 20150204

REACTIONS (2)
  - Blood pressure decreased [None]
  - Dizziness [None]

NARRATIVE: CASE EVENT DATE: 20150204
